FAERS Safety Report 4392247-8 (Version None)
Quarter: 2004Q3

REPORT INFORMATION
  Report Type: 
  Country: None (occurrence: None)
  Receive Date: 20040702
  Receipt Date: 20040619
  Transmission Date: 20050211
  Serious: Yes (Death, Hospitalization)
  Sender: FDA-Public Use
  Company Number: 2004033276

PATIENT
  Age: 75 Year
  Sex: Female

DRUGS (2)
  1. TIKOSYN [Suspect]
     Indication: ATRIAL FIBRILLATION
     Dosage: 500 UNK (250 UNK, 2 IN 1 D), ORAL
     Route: 048
     Dates: start: 20030106, end: 20040205
  2. TIKOSYN [Suspect]
     Indication: ATRIAL TACHYCARDIA
     Dosage: 500 UNK (250 UNK, 2 IN 1 D), ORAL
     Route: 048
     Dates: start: 20030106, end: 20040205

REACTIONS (6)
  - BACTERAEMIA [None]
  - HEPATIC FUNCTION ABNORMAL [None]
  - ILEUS [None]
  - SEPSIS [None]
  - SHOCK [None]
  - SMALL INTESTINAL OBSTRUCTION [None]
